FAERS Safety Report 24057558 (Version 1)
Quarter: 2024Q3

REPORT INFORMATION
  Report Type: Report from Study
  Country: UY (occurrence: UY)
  Receive Date: 20240706
  Receipt Date: 20240706
  Transmission Date: 20241016
  Serious: Yes (Other)
  Sender: ABBVIE
  Company Number: UY-ABBVIE-5826009

PATIENT
  Sex: Male

DRUGS (1)
  1. HUMIRA [Suspect]
     Active Substance: ADALIMUMAB
     Indication: Psoriasis
     Dosage: FORM STRENGTH: 40 MILLIGRAM
     Route: 058
     Dates: start: 20230605

REACTIONS (9)
  - Haemorrhage [Recovered/Resolved]
  - Spinal cord disorder [Unknown]
  - Constipation [Unknown]
  - Asthenia [Recovered/Resolved]
  - Mobility decreased [Unknown]
  - Dyschezia [Unknown]
  - Anaemia [Unknown]
  - Gait disturbance [Recovering/Resolving]
  - Fatigue [Recovered/Resolved]

NARRATIVE: CASE EVENT DATE: 20240501
